FAERS Safety Report 12157363 (Version 2)
Quarter: 2025Q2

REPORT INFORMATION
  Report Type: Spontaneous
  Country: PT (occurrence: PT)
  Receive Date: 20160308
  Receipt Date: 20250414
  Transmission Date: 20250716
  Serious: Yes (Congenital Anomaly, Other)
  Sender: UCB
  Company Number: PT-UCBSA-2016007842

PATIENT
  Sex: Female

DRUGS (1)
  1. LEVETIRACETAM [Suspect]
     Active Substance: LEVETIRACETAM
     Indication: Post-traumatic epilepsy
     Route: 064

REACTIONS (3)
  - Amniotic band syndrome [Not Recovered/Not Resolved]
  - Hypotonia [Unknown]
  - Maternal exposure during pregnancy [Unknown]
